FAERS Safety Report 23350511 (Version 1)
Quarter: 2023Q4

REPORT INFORMATION
  Report Type: Spontaneous
  Country: US (occurrence: US)
  Receive Date: 20231229
  Receipt Date: 20231229
  Transmission Date: 20240109
  Serious: Yes (Other)
  Sender: FDA-Public Use
  Company Number: US-MYLANLABS-2023M1136370

PATIENT
  Sex: Female

DRUGS (1)
  1. ESTRADIOL TRANSDERMAL SYSTEM [Suspect]
     Active Substance: ESTRADIOL
     Indication: Product used for unknown indication
     Dosage: UNK, ONCE WEEKLY
     Route: 062

REACTIONS (6)
  - Cerebrovascular accident [Unknown]
  - Pharyngeal swelling [Unknown]
  - Hypoaesthesia [Unknown]
  - Pain [Unknown]
  - Hot flush [Unknown]
  - Palpitations [Unknown]
